FAERS Safety Report 21670537 (Version 5)
Quarter: 2024Q1

REPORT INFORMATION
  Report Type: Report from Study
  Country: US (occurrence: US)
  Receive Date: 20221201
  Receipt Date: 20240101
  Transmission Date: 20240410
  Serious: Yes (Hospitalization, Other)
  Sender: FDA-Public Use
  Company Number: US-ABBVIE-4215949

PATIENT
  Age: 71 Year
  Sex: Male
  Weight: 59 kg

DRUGS (41)
  1. VENCLEXTA [Suspect]
     Active Substance: VENETOCLAX
     Indication: Plasma cell myeloma
     Dosage: FORM STRENGTH: 100 MILLIGRAM
     Route: 048
     Dates: start: 20221213, end: 20230321
  2. VENCLEXTA [Suspect]
     Active Substance: VENETOCLAX
     Indication: Plasma cell myeloma
     Dosage: FORM STRENGTH: 100 MILLIGRAM?TAKE 8 TABLETS
     Route: 048
     Dates: start: 20221108, end: 20221116
  3. VENCLEXTA [Suspect]
     Active Substance: VENETOCLAX
     Indication: Plasma cell myeloma
     Dosage: 4 TABLETS ONCE DAILY FOR 3 DAYS?LAST ADMIN DATE WAS 2022?FORM STRENGTH: 100 MILLIGRAM
     Route: 048
     Dates: start: 20221116
  4. VENCLEXTA [Suspect]
     Active Substance: VENETOCLAX
     Indication: Plasma cell myeloma
     Dosage: FORM STRENGTH: 100 MILLIGRAM?TAKE 8 TABLETS
     Route: 048
     Dates: start: 20221107, end: 20221108
  5. VENCLEXTA [Suspect]
     Active Substance: VENETOCLAX
     Indication: Plasma cell myeloma
     Dosage: FORM STRENGTH: 100 MILLIGRAM
     Route: 048
     Dates: start: 20230514
  6. ZANAFLEX [Concomitant]
     Active Substance: TIZANIDINE HYDROCHLORIDE
     Indication: Product used for unknown indication
     Dosage: FORM STRENGTH: 2 MILLIGRAM
     Route: 048
     Dates: start: 20220426, end: 20221022
  7. DIPHENHYDRAMINE [Concomitant]
     Active Substance: DIPHENHYDRAMINE
     Indication: Product used for unknown indication
     Dosage: 12.5MG/5ML
  8. NEURONTIN [Concomitant]
     Active Substance: GABAPENTIN
     Indication: Product used for unknown indication
     Dosage: TIME INTERVAL: 0.33333333 DAYS: FORM STRENGTH: 300 MILLIGRAM
     Route: 048
     Dates: start: 20220712, end: 20221105
  9. NEURONTIN [Concomitant]
     Active Substance: GABAPENTIN
     Indication: Product used for unknown indication
     Dosage: TIME INTERVAL: 0.33333333 DAYS: FORM STRENGTH: 300 MILLIGRAM
     Route: 048
     Dates: start: 20221105
  10. DILAUDID [Concomitant]
     Active Substance: HYDROMORPHONE HYDROCHLORIDE
     Indication: Pain
     Dosage: FORM STRENGTH: 2 MILLIGRAM
     Route: 048
     Dates: start: 20220926, end: 20221020
  11. DILAUDID [Concomitant]
     Active Substance: HYDROMORPHONE HYDROCHLORIDE
     Indication: Pain
     Dosage: FORM STRENGTH: 2 MILLIGRAM?FREQUENCY TEXT: EVERY 3-4 HOURS
     Route: 048
     Dates: start: 20221031
  12. DILAUDID [Concomitant]
     Active Substance: HYDROMORPHONE HYDROCHLORIDE
     Indication: Pain
     Dosage: TAKE 1-2 TABLETS (2-4MG)DO NOT TAKE REGULAR HOME DOSE OF DILAUDID.?FORM STRENGTH: 2 MILLIGRAM
     Route: 048
     Dates: start: 20221014, end: 20221031
  13. DILAUDID [Concomitant]
     Active Substance: HYDROMORPHONE HYDROCHLORIDE
     Indication: Pain
     Dosage: TIME INTERVAL: AS NECESSARY: EVERY 3 TO 4 HOURS?FORM STRENGTH: 2 MILLIGRAM?LAST ADMIN DATE: 2022
     Route: 048
     Dates: start: 202202
  14. TYLENOL [Concomitant]
     Active Substance: ACETAMINOPHEN
     Indication: Pyrexia
     Dosage: FORM STRENGTH: 325 MILLIGRAM
     Route: 048
     Dates: start: 20221022
  15. PROAMATINE [Concomitant]
     Active Substance: MIDODRINE HYDROCHLORIDE
     Indication: Product used for unknown indication
     Dosage: TIME INTERVAL: 0.33333333 DAYS: FORM STRENGTH: 5 MILLIGRAM
     Route: 048
     Dates: start: 20221116
  16. PRILOSEC [Concomitant]
     Active Substance: OMEPRAZOLE MAGNESIUM
     Indication: Product used for unknown indication
     Dosage: TAKE 1 HOUR BEFORE MEAL?FORM STRENGTH: 20 MILLIGRAM
     Route: 048
     Dates: start: 20220425, end: 20220526
  17. COMPAZINE [Concomitant]
     Active Substance: PROCHLORPERAZINE MALEATE
     Indication: Nausea
     Dosage: FORM STRENGTH: 10 MILLIGRAM
     Route: 048
     Dates: start: 20220311
  18. CIPRO [Concomitant]
     Active Substance: CIPROFLOXACIN HYDROCHLORIDE
     Indication: Febrile neutropenia
     Dosage: FORM STRENGTH: 500 MILLIGRAM
     Route: 048
     Dates: start: 20221022
  19. DECADRON [Concomitant]
     Active Substance: DEXAMETHASONE
     Indication: Product used for unknown indication
     Dosage: FORM STRENGTH: 4 MILLIGRAM
     Route: 048
     Dates: start: 20220912, end: 20221107
  20. DECADRON [Concomitant]
     Active Substance: DEXAMETHASONE
     Indication: Product used for unknown indication
     Dosage: FORM STRENGTH: 4 MILLIGRAM
     Route: 048
     Dates: start: 20221107
  21. PROTONIX [Concomitant]
     Active Substance: PANTOPRAZOLE SODIUM
     Indication: Product used for unknown indication
     Dosage: TAKE 1 TABLETS BY MOUTH TWO TIMES A DAY BEFORE MEALS?FORM STRENGTH: 40 MILLIGRAM
     Route: 048
     Dates: start: 20220526
  22. CYTOXAN [Concomitant]
     Active Substance: CYCLOPHOSPHAMIDE
     Indication: Product used for unknown indication
     Dosage: FORM STRENGTH: 50 MILLIGRAM
     Route: 048
     Dates: start: 20221107
  23. CYTOXAN [Concomitant]
     Active Substance: CYCLOPHOSPHAMIDE
     Indication: Product used for unknown indication
     Dosage: HOLD TREATMENT UNTIL RE EVALUATION ON 10-OCT-2022?FORM STRENGTH: 50 MILLIGRAM
     Route: 048
     Dates: start: 20221003, end: 20221022
  24. CYTOXAN [Concomitant]
     Active Substance: CYCLOPHOSPHAMIDE
     Indication: Product used for unknown indication
     Dosage: TAKE AS INSTRUCTED BY ONCOLOGIST?FORM STRENGTH: 50 MILLIGRAM
     Route: 048
     Dates: start: 20221022, end: 20221107
  25. KLOR CON M [Concomitant]
     Active Substance: POTASSIUM CHLORIDE
     Indication: Product used for unknown indication
     Dosage: FORM STRENGTH: 20 MILLIEQUIVALENTS ER TABLET?DURATION TEXT: FOR 14 DAYS
     Route: 048
     Dates: start: 20220526, end: 20221022
  26. DIPHENHYDRAMINE HYDROCHLORIDE\LIDOCAINE HYDROCHLORIDE\NYSTATIN [Concomitant]
     Active Substance: DIPHENHYDRAMINE HYDROCHLORIDE\LIDOCAINE HYDROCHLORIDE\NYSTATIN
     Indication: Odynophagia
     Dosage: SWALLOW 5 ML FOUR TIMES DAILY AS NEEDED 15 MINUTES PRIOR TO EATING?FORM STRENGTH: 240 MILLILITRE(S)
     Route: 048
     Dates: start: 20220426
  27. SENOKOT [Concomitant]
     Active Substance: SENNOSIDES
     Indication: Constipation
     Dosage: TIME INTERVAL: AS NECESSARY: 8.6-50 MG?FREQUENCY TEXT: TAKE 1 TABLET AS NEEDED
     Route: 048
     Dates: start: 20220330, end: 20221022
  28. SENOKOT [Concomitant]
     Active Substance: SENNOSIDES
     Indication: Constipation
     Dosage: TIME INTERVAL: AS NECESSARY: 8.6-50 MG TABLET. OK TO USE OVER THE COUNTER?TAKE 1 TABLET AS NEEDED
     Route: 048
     Dates: start: 20221022
  29. AUGMENTIN [Concomitant]
     Active Substance: AMOXICILLIN\CLAVULANATE POTASSIUM
     Indication: Febrile neutropenia
     Dosage: 875-125 MG
     Route: 048
     Dates: start: 20221022
  30. LIDOCAINE VISCOUS [Concomitant]
     Active Substance: LIDOCAINE HYDROCHLORIDE
     Indication: Product used for unknown indication
     Dosage: FORM STRENGTH: 2 PERCENT
  31. VALTREX [Concomitant]
     Active Substance: VALACYCLOVIR HYDROCHLORIDE
     Indication: Product used for unknown indication
     Dosage: FORM STRENGTH: 1 GRAM
     Route: 048
     Dates: start: 20220914, end: 20221022
  32. MEPRON [Concomitant]
     Active Substance: ATOVAQUONE
     Indication: Product used for unknown indication
     Dosage: 750MG/5ML SUSPENSION?FORM STRENGTH: 750 MILLIGRAM
     Route: 048
     Dates: start: 20220419
  33. ZYLOPRIM [Concomitant]
     Active Substance: ALLOPURINOL
     Indication: Product used for unknown indication
     Dosage: FORM STRENGTH: 300 MILLIGRAM
     Route: 048
     Dates: start: 20221022
  34. ZYLOPRIM [Concomitant]
     Active Substance: ALLOPURINOL
     Indication: Product used for unknown indication
     Dosage: FORM STRENGTH: 300 MILLIGRAM
     Route: 048
     Dates: start: 20220302, end: 20221022
  35. NARCAN [Concomitant]
     Active Substance: NALOXONE HYDROCHLORIDE
     Indication: Product used for unknown indication
     Dosage: 4MG/0.1ML NASAL SPRAY?FORM STRENGTH: 4 MILLIGRAM
     Route: 045
     Dates: start: 20220318
  36. ZOVIRAX [Concomitant]
     Active Substance: ACYCLOVIR
     Indication: Product used for unknown indication
     Dosage: FORM STRENGTH: 800 MILLIGRAM
     Route: 048
     Dates: start: 20220822
  37. ELOCON [Concomitant]
     Active Substance: MOMETASONE FUROATE
     Indication: Rash
     Dosage: TWICE DAILY FOR AREAS OF RASH UNTIL RESOLVED, AVOIDS FACE, GROIN, ARM PITS?FORM STRENGTH: 0.1 PER...
     Route: 061
     Dates: start: 20201216, end: 20221022
  38. ELOCON [Concomitant]
     Active Substance: MOMETASONE FUROATE
     Indication: Rash
     Dosage: TWICE DAILY FOR AREAS OF RASH UNTIL RESOLVED, AVOIDS FACE, GROIN, ARM PITS?FORM STRENGTH: 0.1 PER...
     Route: 061
     Dates: start: 20221022
  39. ZOFRAN [Concomitant]
     Active Substance: ONDANSETRON HYDROCHLORIDE
     Indication: Nausea
     Dosage: TIME INTERVAL: 0.33333333 DAYS: TAKE 1-2 TABLETS(4-8MG) 0 BY MOUTH 3 TIMES A DAY?ORALLY DISINTEGR...
     Route: 048
     Dates: start: 20220425
  40. VANCOMYCIN [Concomitant]
     Active Substance: VANCOMYCIN
     Indication: Product used for unknown indication
  41. ALUMINUM HYDROXIDE\DIMETHICONE\MAGNESIUM HYDROXIDE [Concomitant]
     Active Substance: ALUMINUM HYDROXIDE\DIMETHICONE\MAGNESIUM HYDROXIDE
     Indication: Product used for unknown indication
     Dosage: 200-200-20MG/5ML

REACTIONS (8)
  - Clostridium difficile infection [Recovered/Resolved]
  - Off label use [Not Recovered/Not Resolved]
  - Sepsis [Recovered/Resolved]
  - Pneumonia [Recovered/Resolved]
  - Osteogenesis imperfecta [Unknown]
  - Clostridium difficile infection [Recovered/Resolved]
  - Unevaluable event [Not Recovered/Not Resolved]
  - Memory impairment [Unknown]

NARRATIVE: CASE EVENT DATE: 20221213
